FAERS Safety Report 19969601 (Version 2)
Quarter: 2021Q4

REPORT INFORMATION
  Report Type: Spontaneous
  Country: US (occurrence: US)
  Receive Date: 20211019
  Receipt Date: 20211028
  Transmission Date: 20220303
  Serious: No
  Sender: FDA-Public Use
  Company Number: US-BAYER-2021A232206

PATIENT
  Age: 88 Year
  Sex: Male

DRUGS (1)
  1. LOTRIMIN ULTRA [Suspect]
     Active Substance: BUTENAFINE HYDROCHLORIDE
     Indication: Tinea cruris
     Dosage: 1 DF, QD
     Route: 061
     Dates: end: 20211014

REACTIONS (2)
  - Tinea cruris [Recovering/Resolving]
  - Drug ineffective [Recovering/Resolving]
